FAERS Safety Report 23588041 (Version 1)
Quarter: 2024Q1

REPORT INFORMATION
  Report Type: Spontaneous
  Country: CL (occurrence: CL)
  Receive Date: 20240301
  Receipt Date: 20240301
  Transmission Date: 20240410
  Serious: Yes (Death)
  Sender: FDA-Public Use
  Company Number: CL-BoehringerIngelheim-2024-BI-011903

PATIENT
  Sex: Female

DRUGS (1)
  1. NINTEDANIB [Suspect]
     Active Substance: NINTEDANIB
     Indication: Interstitial lung disease

REACTIONS (1)
  - Death [Fatal]
